FAERS Safety Report 13200549 (Version 1)
Quarter: 2017Q1

REPORT INFORMATION
  Report Type: Report from Study
  Country: FR (occurrence: FR)
  Receive Date: 20170208
  Receipt Date: 20170208
  Transmission Date: 20170428
  Serious: Yes (Hospitalization, Other)
  Sender: FDA-Public Use
  Company Number: FR-BRISTOL-MYERS SQUIBB COMPANY-BMS-2013-000121

PATIENT
  Age: 18 Year
  Sex: Male

DRUGS (2)
  1. CYCLOPHOSPHAMIDE. [Suspect]
     Active Substance: CYCLOPHOSPHAMIDE
     Indication: T-CELL TYPE ACUTE LEUKAEMIA
     Dosage: 450 MG, UNK
     Route: 042
     Dates: start: 20170125
  2. NIVOLUMAB [Suspect]
     Active Substance: NIVOLUMAB
     Indication: T-CELL TYPE ACUTE LEUKAEMIA
     Dosage: 140 MG, UNK
     Route: 042
     Dates: start: 20170125

REACTIONS (1)
  - Nervous system disorder [Not Recovered/Not Resolved]

NARRATIVE: CASE EVENT DATE: 20170127
